FAERS Safety Report 6848180-2 (Version None)
Quarter: 2010Q3

REPORT INFORMATION
  Report Type: 
  Country: None (occurrence: None)
  Receive Date: 20100716
  Receipt Date: 20100707
  Transmission Date: 20110219
  Serious: Yes (Hospitalization)
  Sender: FDA-Public Use
  Company Number: B0600233C

PATIENT
  Sex: Female
  Weight: 75 kg

DRUGS (5)
  1. LAPATINIB [Suspect]
     Indication: BREAST CANCER
     Dosage: 1000MG PER DAY
     Route: 048
     Dates: start: 20091014
  2. TRASTUZUMAB [Suspect]
     Indication: BREAST CANCER
     Dosage: 2MGK WEEKLY
     Route: 042
     Dates: start: 20091014
  3. DOCETAXEL [Suspect]
     Indication: BREAST CANCER
     Dosage: 75MGM2 EVERY 3 WEEKS
     Route: 042
     Dates: start: 20091014
  4. CIPROFLOXACIN [Concomitant]
     Indication: ANTIBIOTIC PROPHYLAXIS
     Dosage: 250MG TWICE PER DAY
     Route: 048
     Dates: start: 20091209
  5. LENOGRASTIM [Concomitant]
     Indication: NEUTROPENIA
     Route: 058
     Dates: start: 20091205, end: 20091209

REACTIONS (3)
  - FEBRILE NEUTROPENIA [None]
  - INSOMNIA [None]
  - WHITE BLOOD CELL COUNT DECREASED [None]
